FAERS Safety Report 9865574 (Version 1)
Quarter: 2014Q1

REPORT INFORMATION
  Report Type: Spontaneous
  Country: US (occurrence: US)
  Receive Date: 20140203
  Receipt Date: 20140203
  Transmission Date: 20141002
  Serious: No
  Sender: FDA-Public Use
  Company Number: US-ALLERGAN-1305507US

PATIENT
  Age: 56 Year
  Sex: Male

DRUGS (9)
  1. RESTASIS [Suspect]
     Indication: DRY EYE
     Dosage: 2 GTT, BID
     Route: 047
  2. DILTIAZEM [Concomitant]
     Indication: ATRIAL FIBRILLATION
     Dosage: 120 MG, QD
     Route: 048
  3. METHYLPREDNISOLONE [Concomitant]
     Indication: DERMATITIS CONTACT
     Dosage: UNK
     Route: 048
  4. HYDROCODONE [Concomitant]
     Indication: NECK PAIN
     Dosage: UNK UNK, QID
     Route: 048
  5. PROZAC                             /00724401/ [Concomitant]
     Indication: DEPRESSION
     Dosage: 20 MG, QD
     Route: 048
  6. CELEBREX [Concomitant]
     Indication: BACK PAIN
     Dosage: 200 MG, QD
     Route: 048
  7. CARISOPRODOL [Concomitant]
     Indication: MUSCLE SPASMS
     Dosage: 350 MG, QD
     Route: 048
  8. BUTALBITAL [Concomitant]
     Indication: MIGRAINE
     Dosage: UNK UNK, QD
     Route: 048
  9. CLONAZEPAM [Concomitant]
     Indication: ANXIETY
     Route: 048

REACTIONS (1)
  - Eye irritation [Unknown]
